FAERS Safety Report 8391795-3 (Version None)
Quarter: 2012Q2

REPORT INFORMATION
  Report Type: 
  Country: None (occurrence: None)
  Receive Date: 20120529
  Receipt Date: 20120525
  Transmission Date: 20120825
  Serious: No
  Sender: FDA-Public Use
  Company Number: US-BAYER-2012-050190

PATIENT
  Age: 25 Year
  Sex: Female

DRUGS (1)
  1. MIRENA [Suspect]
     Indication: CONTRACEPTION
     Dosage: UNK
     Dates: start: 20120517, end: 20120517

REACTIONS (4)
  - DEVICE DIFFICULT TO USE [None]
  - DEVICE EXPULSION [None]
  - PELVIC PAIN [None]
  - COMPLICATION OF DEVICE INSERTION [None]
